FAERS Safety Report 24417895 (Version 2)
Quarter: 2025Q2

REPORT INFORMATION
  Report Type: Report from Study
  Country: US (occurrence: US)
  Receive Date: 20241009
  Receipt Date: 20250505
  Transmission Date: 20250717
  Serious: Yes (Hospitalization)
  Sender: EISAI
  Company Number: US-Eisai Medical Research-EC-2023-143362

PATIENT
  Age: 62 Year
  Sex: Female

DRUGS (7)
  1. LENVIMA [Suspect]
     Active Substance: LENVATINIB
     Indication: Endometrial cancer
     Dates: start: 20230317, end: 202305
  2. LENVIMA [Suspect]
     Active Substance: LENVATINIB
     Dates: start: 20230601, end: 2023
  3. LENVIMA [Suspect]
     Active Substance: LENVATINIB
     Dates: end: 2025
  4. LENVIMA [Suspect]
     Active Substance: LENVATINIB
     Dates: start: 2025
  5. PAXIL [Concomitant]
     Active Substance: PAROXETINE HYDROCHLORIDE
  6. PAXIL [Concomitant]
     Active Substance: PAROXETINE HYDROCHLORIDE
  7. KEYTRUDA [Concomitant]
     Active Substance: PEMBROLIZUMAB

REACTIONS (1)
  - Pancreatitis [Recovered/Resolved]

NARRATIVE: CASE EVENT DATE: 20230503
